FAERS Safety Report 21286185 (Version 1)
Quarter: 2022Q3

REPORT INFORMATION
  Report Type: Spontaneous
  Country: US (occurrence: None)
  Receive Date: 20220901
  Receipt Date: 20220901
  Transmission Date: 20221026
  Serious: Yes (unspecified)
  Sender: FDA-Public Use
  Company Number: None

PATIENT
  Age: 60 Year
  Sex: Male
  Weight: 55.34 kg

DRUGS (4)
  1. EVEROLIMUS [Suspect]
     Active Substance: EVEROLIMUS
     Dosage: FREQUENCY : DAILY;?
     Route: 048
     Dates: end: 20220831
  2. UNSPECIFIED INGREDIENT [Suspect]
     Active Substance: UNSPECIFIED INGREDIENT
  3. GABAPENTIN [Concomitant]
     Active Substance: GABAPENTIN
  4. NORCO [Concomitant]
     Active Substance: ACETAMINOPHEN\HYDROCODONE BITARTRATE

REACTIONS (7)
  - Product packaging quantity issue [None]
  - Therapy interrupted [None]
  - Emotional distress [None]
  - Stress [None]
  - Depression [None]
  - Pruritus [None]
  - Product label confusion [None]

NARRATIVE: CASE EVENT DATE: 20220818
